FAERS Safety Report 5967894-X (Version None)
Quarter: 2008Q4

REPORT INFORMATION
  Report Type: 
  Country: None (occurrence: None)
  Receive Date: 20081126
  Receipt Date: 20081117
  Transmission Date: 20090506
  Serious: Yes (Hospitalization, Disabling)
  Sender: FDA-Public Use
  Company Number: JP-NOVOPROD-281584

PATIENT
  Age: 67 Year
  Sex: Male
  Weight: 40 kg

DRUGS (1)
  1. INNOLET 30R CHU [Suspect]
     Indication: TYPE 2 DIABETES MELLITUS
     Dosage: 15IU-0IU-6IU
     Route: 058
     Dates: end: 20080504

REACTIONS (1)
  - HYPOGLYCAEMIC ENCEPHALOPATHY [None]
